FAERS Safety Report 10518581 (Version 2)
Quarter: 2014Q4

REPORT INFORMATION
  Report Type: Report from Study
  Country: US (occurrence: US)
  Receive Date: 20141015
  Receipt Date: 20141015
  Transmission Date: 20150528
  Serious: Yes (Other)
  Sender: FDA-Public Use
  Company Number: US-LEO PHARMA-222911

PATIENT
  Age: 40 Year
  Sex: Female

DRUGS (1)
  1. PICATO [Suspect]
     Active Substance: INGENOL MEBUTATE
     Indication: ACTINIC KERATOSIS
     Route: 061
     Dates: start: 20130726

REACTIONS (11)
  - Application site swelling [Recovered/Resolved]
  - Lip swelling [Recovered/Resolved]
  - Drug prescribing error [Recovered/Resolved]
  - Oral discomfort [Recovered/Resolved]
  - Drug administered at inappropriate site [Recovered/Resolved]
  - Inappropriate schedule of drug administration [Recovered/Resolved]
  - Application site pain [Recovered/Resolved]
  - Gingival pain [Recovered/Resolved]
  - Incorrect dose administered [Recovered/Resolved]
  - Application site vesicles [Recovered/Resolved]
  - Gingival swelling [Recovered/Resolved]

NARRATIVE: CASE EVENT DATE: 20130726
